FAERS Safety Report 6125971-7 (Version None)
Quarter: 2009Q1

REPORT INFORMATION
  Report Type: 
  Country: None (occurrence: None)
  Receive Date: 20090320
  Receipt Date: 20090312
  Transmission Date: 20090719
  Serious: Yes (Hospitalization, Other)
  Sender: FDA-Public Use
  Company Number: US-ABBOTT-09P-163-0562558-00

PATIENT
  Sex: Male
  Weight: 99.88 kg

DRUGS (2)
  1. HUMIRA [Suspect]
     Indication: RHEUMATOID ARTHRITIS
     Route: 058
     Dates: start: 20060312, end: 20080701
  2. HUMIRA [Suspect]
     Route: 058
     Dates: start: 20080901

REACTIONS (8)
  - DECREASED APPETITE [None]
  - PERINEPHRIC EFFUSION [None]
  - PRURITUS [None]
  - RASH MACULAR [None]
  - RENAL HAEMORRHAGE [None]
  - SKIN HAEMORRHAGE [None]
  - URINARY TRACT INFECTION [None]
  - WEIGHT DECREASED [None]
